FAERS Safety Report 7617864-0 (Version None)
Quarter: 2011Q3

REPORT INFORMATION
  Report Type: 
  Country: None (occurrence: None)
  Receive Date: 20110718
  Receipt Date: 20110711
  Transmission Date: 20111222
  Serious: Yes (Hospitalization)
  Sender: FDA-Public Use
  Company Number: US-BAYER-201041671NA

PATIENT
  Age: 26 Year
  Sex: Female
  Weight: 63.946 kg

DRUGS (11)
  1. METHYLPREDNISOLONE [Concomitant]
  2. VICODIN [Concomitant]
  3. YAZ [Suspect]
     Indication: POLYCYSTIC OVARIES
  4. YAZ [Suspect]
     Dosage: UNK
     Dates: start: 20080314, end: 20080731
  5. YASMIN [Suspect]
  6. NSAID'S [Concomitant]
  7. YASMIN [Suspect]
     Indication: PREMENSTRUAL SYNDROME
     Dosage: UNK
     Route: 048
     Dates: start: 20071220, end: 20080216
  8. SOMA [Concomitant]
  9. ZITHROMAX [Concomitant]
  10. YAZ [Suspect]
     Indication: PREMENSTRUAL SYNDROME
     Dosage: UNK
     Route: 048
     Dates: start: 20070920, end: 20071203
  11. YASMIN [Suspect]
     Indication: POLYCYSTIC OVARIES

REACTIONS (1)
  - PULMONARY EMBOLISM [None]
